FAERS Safety Report 8797666 (Version 2)
Quarter: 2015Q1

REPORT INFORMATION
  Report Type: Report from Study
  Country: US (occurrence: US)
  Receive Date: 20120919
  Receipt Date: 20150316
  Transmission Date: 20150721
  Serious: Yes (Death)
  Sender: FDA-Public Use
  Company Number: US-ROCHE-1124661

PATIENT
  Sex: Male

DRUGS (20)
  1. AVASTIN [Suspect]
     Active Substance: BEVACIZUMAB
     Indication: COLON CANCER
     Dosage: HE RECEIVED NEXT DOSE (772 MG) ON 19/DEC/2006
     Route: 042
     Dates: start: 20061128
  2. AVASTIN [Suspect]
     Active Substance: BEVACIZUMAB
     Dosage: HE RECEIVED NEXT DOSE (764.3 MG) ON 18/JUL/2006, 06/AUG/2006, 29/AUG/2006, 19/SEP/2006, 10/OCT/2006,
     Route: 042
     Dates: start: 20060627
  3. XELODA [Concomitant]
     Active Substance: CAPECITABINE
     Route: 048
  4. CETUXIMAB [Concomitant]
     Active Substance: CETUXIMAB
     Route: 042
  5. BENADRYL [Concomitant]
     Active Substance: DIPHENHYDRAMINE HYDROCHLORIDE
     Route: 042
  6. MAGNESIUM SULFATE. [Concomitant]
     Active Substance: MAGNESIUM SULFATE
     Route: 042
  7. AVASTIN [Suspect]
     Active Substance: BEVACIZUMAB
     Dosage: HE RECEIVED NEXT DOSE ON 22/MAY/2007
     Route: 042
     Dates: start: 20070416
  8. AVASTIN [Suspect]
     Active Substance: BEVACIZUMAB
     Route: 042
     Dates: start: 20070118
  9. CETUXIMAB [Concomitant]
     Active Substance: CETUXIMAB
     Route: 042
  10. DECADRON [Concomitant]
     Active Substance: DEXAMETHASONE
     Route: 042
  11. MAGNESIUM SULFATE. [Concomitant]
     Active Substance: MAGNESIUM SULFATE
     Route: 042
  12. OXALIPLATIN. [Concomitant]
     Active Substance: OXALIPLATIN
     Route: 042
  13. AVASTIN [Suspect]
     Active Substance: BEVACIZUMAB
     Dosage: HE RECEIVED NEXT DOSE ON 06/MAR/2007
     Route: 042
     Dates: start: 20070212
  14. TYLENOL [Concomitant]
     Active Substance: ACETAMINOPHEN
     Route: 048
  15. CETUXIMAB [Concomitant]
     Active Substance: CETUXIMAB
     Route: 042
  16. DECADRON [Concomitant]
     Active Substance: DEXAMETHASONE
     Route: 042
  17. CALCIUM GLUCONATE. [Concomitant]
     Active Substance: CALCIUM GLUCONATE
     Route: 065
  18. CETUXIMAB [Concomitant]
     Active Substance: CETUXIMAB
     Route: 042
  19. AVASTIN [Suspect]
     Active Substance: BEVACIZUMAB
     Route: 042
     Dates: start: 20070328
  20. ZOFRAN [Concomitant]
     Active Substance: ONDANSETRON HYDROCHLORIDE
     Route: 042

REACTIONS (4)
  - Death [Fatal]
  - Cough [Unknown]
  - Fatigue [Unknown]
  - Hypoaesthesia [Unknown]
